FAERS Safety Report 9766123 (Version 2)
Quarter: 2014Q1

REPORT INFORMATION
  Report Type: Report from Study
  Country: DE (occurrence: DE)
  Receive Date: 20131217
  Receipt Date: 20140122
  Transmission Date: 20141002
  Serious: Yes (Other)
  Sender: FDA-Public Use
  Company Number: DE-INCYTE CORPORATION-2013IN002954

PATIENT
  Sex: 0
  Weight: 93 kg

DRUGS (4)
  1. INCB018424 [Suspect]
     Indication: MYELOFIBROSIS
     Dosage: 20 MG, 2 DF PER DAY
     Route: 048
     Dates: start: 20130829
  2. INCB018424 [Suspect]
     Dosage: 15 MG, BID, 2 DF PER DAY
     Route: 048
     Dates: start: 20131115
  3. SPIRONOLACTONE [Concomitant]
     Dosage: UNK
     Dates: start: 20110811
  4. XARELTO [Concomitant]
     Dosage: UNK
     Dates: start: 20130829

REACTIONS (1)
  - Ascites [Not Recovered/Not Resolved]
